FAERS Safety Report 6582893-5 (Version None)
Quarter: 2010Q1

REPORT INFORMATION
  Report Type: 
  Country: None (occurrence: None)
  Receive Date: 20100216
  Receipt Date: 20100204
  Transmission Date: 20100710
  Serious: Yes (Hospitalization)
  Sender: FDA-Public Use
  Company Number: US-SANOFI-AVENTIS-2010SA000855

PATIENT
  Age: 58 Year
  Sex: Female

DRUGS (11)
  1. OXALIPLATIN [Suspect]
     Route: 041
     Dates: start: 20091109, end: 20091109
  2. OXALIPLATIN [Suspect]
     Route: 041
     Dates: start: 20091228, end: 20091228
  3. GEMCITABINE [Suspect]
     Route: 042
     Dates: start: 20091109, end: 20091109
  4. GEMCITABINE [Suspect]
     Route: 042
     Dates: start: 20091228, end: 20091228
  5. PRAVASTATIN [Concomitant]
  6. LOTREL [Concomitant]
     Dosage: 5/40 MG DAILY
  7. ALL OTHER THERAPEUTIC PRODUCTS [Concomitant]
  8. PRILOSEC [Concomitant]
  9. LASIX [Concomitant]
  10. LOZOL [Concomitant]
  11. TOPROL-XL [Concomitant]

REACTIONS (4)
  - ANAEMIA [None]
  - BLOOD CREATINE PHOSPHOKINASE INCREASED [None]
  - OEDEMA PERIPHERAL [None]
  - RHABDOMYOLYSIS [None]
